FAERS Safety Report 7120602-1 (Version None)
Quarter: 2010Q4

REPORT INFORMATION
  Report Type: 
  Country: None (occurrence: None)
  Receive Date: 20101124
  Receipt Date: 20101117
  Transmission Date: 20110411
  Serious: Yes (Other)
  Sender: FDA-Public Use
  Company Number: US-US-EMD SERONO, INC.-232979J09USA

PATIENT
  Sex: Male

DRUGS (3)
  1. REBIF [Suspect]
     Indication: MULTIPLE SCLEROSIS
     Route: 058
     Dates: start: 20090819
  2. PROVIGIL [Concomitant]
     Indication: FATIGUE
     Route: 065
  3. COUMADIN [Concomitant]
     Route: 065

REACTIONS (1)
  - RENAL CYST [None]
